FAERS Safety Report 4734625-0 (Version None)
Quarter: 2005Q3

REPORT INFORMATION
  Report Type: 
  Country: None (occurrence: None)
  Receive Date: 20050804
  Receipt Date: 20050725
  Transmission Date: 20060218
  Serious: Yes (Other)
  Sender: FDA-Public Use
  Company Number: ES-SANOFI-SYNTHELABO-F01200501414

PATIENT
  Sex: Male

DRUGS (1)
  1. DANAZOL [Suspect]
     Indication: ANAEMIA
     Dosage: 600 MG
     Route: 048

REACTIONS (1)
  - PROSTATE CANCER [None]
